FAERS Safety Report 23723630 (Version 1)
Quarter: 2024Q2

REPORT INFORMATION
  Report Type: Spontaneous
  Country: US (occurrence: US)
  Receive Date: 20240409
  Receipt Date: 20240409
  Transmission Date: 20240716
  Serious: Yes (Hospitalization, Other)
  Sender: FDA-Public Use
  Company Number: US-009507513-2404USA004680

PATIENT
  Sex: Female

DRUGS (1)
  1. KEYTRUDA [Suspect]
     Active Substance: PEMBROLIZUMAB
     Indication: Neuroendocrine carcinoma of the skin
     Dosage: UNK, Q3W

REACTIONS (3)
  - Immune-mediated enterocolitis [Recovered/Resolved]
  - ACTH stimulation test abnormal [Recovered/Resolved]
  - Fatigue [Recovered/Resolved]
